FAERS Safety Report 7280299-7 (Version None)
Quarter: 2011Q1

REPORT INFORMATION
  Report Type: 
  Country: None (occurrence: None)
  Receive Date: 20110208
  Receipt Date: 20101123
  Transmission Date: 20110831
  Serious: Yes (Hospitalization)
  Sender: FDA-Public Use
  Company Number: US-BAYER-201037666NA

PATIENT
  Sex: Female
  Weight: 65.76 kg

DRUGS (7)
  1. OCELLA [Suspect]
     Indication: ACNE
  2. PONSTEL [Concomitant]
  3. ADVIL [Concomitant]
  4. UNCODEABLE ^UNCLASSIFIABLE^ [Concomitant]
     Dosage: UNK
     Dates: end: 20021224
  5. YAZ [Suspect]
  6. YASMIN [Suspect]
     Indication: PREMENSTRUAL SYNDROME
     Dosage: UNK
     Dates: start: 20020301, end: 20040101
  7. YASMIN [Suspect]
     Dosage: UNK
     Dates: end: 20040204

REACTIONS (6)
  - PAIN IN EXTREMITY [None]
  - MUSCULOSKELETAL PAIN [None]
  - DEEP VEIN THROMBOSIS [None]
  - OEDEMA PERIPHERAL [None]
  - FATIGUE [None]
  - SKIN DISCOLOURATION [None]
